FAERS Safety Report 22375012 (Version 1)
Quarter: 2023Q2

REPORT INFORMATION
  Report Type: Spontaneous
  Country: FR (occurrence: FR)
  Receive Date: 20230527
  Receipt Date: 20230527
  Transmission Date: 20230722
  Serious: Yes (Other)
  Sender: FDA-Public Use
  Company Number: FR-AFSSAPS-MP2023000932

PATIENT
  Age: 28 Year
  Sex: Male
  Weight: 63 kg

DRUGS (2)
  1. FLUOXETINE [Suspect]
     Active Substance: FLUOXETINE HYDROCHLORIDE
     Indication: Major depression
     Dosage: 20 MILLIGRAM, ONCE A DAY
     Route: 048
     Dates: start: 20230321, end: 20230405
  2. ALPRAZOLAM [Concomitant]
     Active Substance: ALPRAZOLAM
     Indication: Product used for unknown indication
     Dosage: 0.25 MILLIGRAM, AS NECESSARY
     Route: 048
     Dates: start: 20230321

REACTIONS (4)
  - Suicidal ideation [Recovered/Resolved]
  - Sedation [Recovered/Resolved]
  - Lethargy [Recovered/Resolved]
  - Muscle tightness [Recovered/Resolved]

NARRATIVE: CASE EVENT DATE: 20230405
